FAERS Safety Report 25806963 (Version 1)
Quarter: 2025Q3

REPORT INFORMATION
  Report Type: Spontaneous
  Country: CN (occurrence: CN)
  Receive Date: 20250916
  Receipt Date: 20250916
  Transmission Date: 20251020
  Serious: No
  Sender: ANI
  Company Number: None

PATIENT
  Age: 28 Year
  Sex: Female

DRUGS (6)
  1. FLUVOXAMINE MALEATE [Suspect]
     Active Substance: FLUVOXAMINE MALEATE
     Indication: Obsessive-compulsive disorder
     Route: 048
     Dates: start: 20250621
  2. ARIPIPRAZOLE [Concomitant]
     Active Substance: ARIPIPRAZOLE
     Indication: Symptomatic treatment
     Route: 048
     Dates: start: 20250807, end: 20250825
  3. LAMOTRIGINE [Concomitant]
     Active Substance: LAMOTRIGINE
     Indication: Dysphoria
     Route: 048
     Dates: start: 20250715
  4. FLUVOXAMINE MALEATE [Suspect]
     Active Substance: FLUVOXAMINE MALEATE
     Indication: Obsessive-compulsive disorder
     Route: 048
     Dates: start: 20250623
  5. FLUVOXAMINE MALEATE [Suspect]
     Active Substance: FLUVOXAMINE MALEATE
     Indication: Obsessive-compulsive disorder
     Route: 048
     Dates: start: 20250722, end: 20250815
  6. LAMOTRIGINE [Concomitant]
     Active Substance: LAMOTRIGINE
     Indication: Dysphoria
     Route: 048
     Dates: start: 20250815

REACTIONS (1)
  - Liver function test increased [Recovering/Resolving]

NARRATIVE: CASE EVENT DATE: 20250814
